FAERS Safety Report 6900138-0 (Version None)
Quarter: 2010Q3

REPORT INFORMATION
  Report Type: 
  Country: None (occurrence: None)
  Receive Date: 20100803
  Receipt Date: 20100722
  Transmission Date: 20110219
  Serious: Yes (Other)
  Sender: FDA-Public Use
  Company Number: US-MYLANLABS-2010S1012280

PATIENT
  Age: 24 Year
  Sex: Male

DRUGS (2)
  1. AMNESTEEM [Suspect]
     Indication: ACNE
     Route: 048
     Dates: start: 20100201, end: 20100301
  2. AMNESTEEM [Suspect]
     Route: 048
     Dates: start: 20100401, end: 20100701

REACTIONS (1)
  - DEAFNESS [None]
